FAERS Safety Report 21900594 (Version 5)
Quarter: 2023Q1

REPORT INFORMATION
  Report Type: Report from Study
  Country: KR (occurrence: KR)
  Receive Date: 20230123
  Receipt Date: 20230323
  Transmission Date: 20230418
  Serious: Yes (Life-Threatening, Hospitalization)
  Sender: FDA-Public Use
  Company Number: KR-JNJFOC-20230138371

PATIENT
  Age: 60 Year
  Sex: Male
  Weight: 47 kg

DRUGS (24)
  1. TECLISTAMAB [Suspect]
     Active Substance: TECLISTAMAB
     Indication: Plasma cell myeloma
     Route: 058
     Dates: start: 20221102, end: 20221104
  2. TECLISTAMAB [Suspect]
     Active Substance: TECLISTAMAB
     Route: 058
     Dates: start: 20221108, end: 20221227
  3. DARATUMUMAB [Suspect]
     Active Substance: DARATUMUMAB
     Indication: Plasma cell myeloma
     Route: 058
     Dates: start: 20221101, end: 20221227
  4. MIDRON [Concomitant]
     Indication: Hypotension
     Route: 048
     Dates: start: 20221031
  5. CALCIUM CARBONATE\CHOLECALCIFEROL [Concomitant]
     Active Substance: CALCIUM CARBONATE\CHOLECALCIFEROL
     Indication: Supplementation therapy
     Route: 048
     Dates: start: 20221114, end: 20230108
  6. FLUCONAZOLE [Concomitant]
     Active Substance: FLUCONAZOLE
     Indication: Infection prophylaxis
     Route: 048
     Dates: start: 20221129
  7. ACLOVA [ACICLOVIR] [Concomitant]
     Indication: Infection prophylaxis
     Route: 048
     Dates: start: 20221129
  8. NEXIUM [Concomitant]
     Active Substance: ESOMEPRAZOLE MAGNESIUM
     Indication: Prophylaxis
     Route: 048
     Dates: start: 20221129, end: 20230307
  9. BEAROBAN [Concomitant]
     Indication: Prophylaxis
     Dosage: DOSE: 1 (DOSE UNIT NOT REPORTED)
     Route: 062
     Dates: start: 20221206
  10. ERDOSTEINE [Concomitant]
     Active Substance: ERDOSTEINE
     Indication: Prophylaxis
     Route: 048
     Dates: start: 20221207
  11. VARIDASE [Concomitant]
     Indication: Prophylaxis
     Route: 048
     Dates: start: 20221207
  12. ALLEGRA [Concomitant]
     Active Substance: FEXOFENADINE HYDROCHLORIDE
     Indication: Prophylaxis
     Route: 048
     Dates: start: 20221207
  13. FINASTERIDE [Concomitant]
     Active Substance: FINASTERIDE
     Indication: Prophylaxis
     Route: 048
     Dates: start: 20221208
  14. HARNAL [Concomitant]
     Active Substance: TAMSULOSIN HYDROCHLORIDE
     Indication: Prophylaxis
     Route: 048
     Dates: start: 20221210
  15. LASIX [Concomitant]
     Active Substance: FUROSEMIDE
     Indication: Heart disease congenital
     Route: 048
     Dates: start: 20221219
  16. SPIRODACTON [Concomitant]
     Indication: Heart disease congenital
     Route: 048
     Dates: start: 20221220
  17. LEVOFLOXACIN [Concomitant]
     Active Substance: LEVOFLOXACIN
     Indication: Infection prophylaxis
     Route: 048
     Dates: start: 20221221
  18. TASNA [Concomitant]
     Indication: Prophylaxis
     Route: 048
     Dates: start: 20221221, end: 20230101
  19. WELLTAMIN [Concomitant]
     Indication: Vitamin supplementation
     Route: 048
     Dates: start: 20221222
  20. TERIPARATIDE [Concomitant]
     Active Substance: TERIPARATIDE
     Indication: Osteoporosis prophylaxis
     Dosage: DOSE: 1 (DOSE UNIT NOT PROVIDED)
     Route: 058
  21. COVID-19 VACCINE [Concomitant]
     Indication: Prophylaxis
     Route: 030
     Dates: start: 20210809, end: 20210809
  22. COVID-19 VACCINE [Concomitant]
     Route: 030
     Dates: start: 20210915, end: 20210915
  23. COVID-19 VACCINE [Concomitant]
     Route: 030
     Dates: start: 20211224, end: 20211224
  24. LIV GAMMA SN [Concomitant]
     Indication: Prophylaxis
     Route: 042
     Dates: start: 20230316, end: 20230316

REACTIONS (3)
  - Pneumonitis [Recovered/Resolved]
  - Cardiac arrest [Recovered/Resolved]
  - Asthenia [Recovering/Resolving]

NARRATIVE: CASE EVENT DATE: 20230109
